FAERS Safety Report 6386121-5 (Version None)
Quarter: 2009Q4

REPORT INFORMATION
  Report Type: 
  Country: None (occurrence: None)
  Receive Date: 20091002
  Receipt Date: 20081124
  Transmission Date: 20100525
  Serious: No
  Sender: FDA-Public Use
  Company Number: US-ASTRAZENECA-2008UW26352

PATIENT
  Age: 59 Year
  Sex: Female
  Weight: 70.3 kg

DRUGS (3)
  1. ARIMIDEX [Suspect]
     Indication: BREAST CANCER RECURRENT
     Dosage: UNKNOWN
     Route: 048
     Dates: start: 20071101
  2. BABY ASPRIRIN [Concomitant]
  3. M.V.I. [Concomitant]

REACTIONS (3)
  - DRY MOUTH [None]
  - DRY THROAT [None]
  - WEIGHT INCREASED [None]
